FAERS Safety Report 8954318 (Version 1)
Quarter: 2012Q4

REPORT INFORMATION
  Report Type: 
  Country: US (occurrence: US)
  Receive Date: 20121207
  Receipt Date: 20121207
  Transmission Date: 20130627
  Serious: Yes (Hospitalization)
  Sender: FDA-Public Use
  Company Number: US-US-EMD SERONO, INC.-7010332

PATIENT
  Sex: Female
  Weight: 63 kg

DRUGS (3)
  1. REBIF [Suspect]
     Indication: MULTIPLE SCLEROSIS
     Route: 058
     Dates: start: 20060106
  2. PROVIGIL [Concomitant]
     Indication: FATIGUE
  3. FOSAMAX [Concomitant]
     Indication: BONE DENSITY DECREASED
     Dates: start: 2006

REACTIONS (5)
  - Atrioventricular block second degree [Recovered/Resolved]
  - Pulmonary mass [Not Recovered/Not Resolved]
  - Hypotension [Recovered/Resolved]
  - Chest discomfort [Recovered/Resolved]
  - Dyskinesia [Unknown]
